FAERS Safety Report 4656203-4 (Version None)
Quarter: 2005Q2

REPORT INFORMATION
  Report Type: 
  Country: None (occurrence: None)
  Receive Date: 20050509
  Receipt Date: 20050215
  Transmission Date: 20051028
  Serious: No
  Sender: FDA-Public Use
  Company Number: US-GLAXOSMITHKLINE-A0545905A

PATIENT
  Sex: Male

DRUGS (2)
  1. AVANDAMET [Suspect]
     Dosage: 1.5TAB PER DAY
     Route: 048
  2. NO CONCURRENT MEDICATION [Concomitant]

REACTIONS (2)
  - DRUG ADMINISTRATION ERROR [None]
  - THERAPEUTIC RESPONSE UNEXPECTED [None]
